FAERS Safety Report 18578419 (Version 1)
Quarter: 2020Q4

REPORT INFORMATION
  Report Type: Spontaneous
  Country: GB (occurrence: GB)
  Receive Date: 20201204
  Receipt Date: 20201204
  Transmission Date: 20210114
  Serious: Yes (Other)
  Sender: FDA-Public Use
  Company Number: GB-PFIZER INC-2020474454

PATIENT
  Age: 37 Year
  Sex: Female

DRUGS (3)
  1. SERTRALINE [Concomitant]
     Active Substance: SERTRALINE HYDROCHLORIDE
     Dosage: UNK
  2. FRAGMIN [Suspect]
     Active Substance: DALTEPARIN SODIUM
     Indication: POSTOPERATIVE CARE
     Dosage: UNK
     Route: 051
     Dates: start: 20201103
  3. DIHYDROCODEINE [Concomitant]
     Active Substance: DIHYDROCODEINE

REACTIONS (1)
  - Abdominal pain upper [Unknown]

NARRATIVE: CASE EVENT DATE: 20201104
